FAERS Safety Report 5113129-X (Version None)
Quarter: 2006Q3

REPORT INFORMATION
  Report Type: 
  Country: None (occurrence: None)
  Receive Date: 20060920
  Receipt Date: 20060905
  Transmission Date: 20061208
  Serious: Yes (Hospitalization)
  Sender: FDA-Public Use
  Company Number: US200609002404

PATIENT
  Age: 68 Year
  Sex: Female

DRUGS (3)
  1. HUMALOG [Suspect]
  2. NOVOLIN N [Concomitant]
  3. BYETTA (EXENATIDE) PEN, DISPOSABLE [Concomitant]

REACTIONS (9)
  - ANAEMIA [None]
  - ANGIOPLASTY [None]
  - BLOOD GLUCOSE DECREASED [None]
  - CHILLS [None]
  - CORONARY ARTERIAL STENT INSERTION [None]
  - DECREASED APPETITE [None]
  - PERIPHERAL COLDNESS [None]
  - SLUGGISHNESS [None]
  - WEIGHT DECREASED [None]
